FAERS Safety Report 9473158 (Version 2)
Quarter: 2013Q3

REPORT INFORMATION
  Report Type: Spontaneous
  Country: US (occurrence: US)
  Receive Date: 20130823
  Receipt Date: 20130823
  Transmission Date: 20140515
  Serious: No
  Sender: FDA-Public Use
  Company Number: US-BRISTOL-MYERS SQUIBB COMPANY-18707448

PATIENT
  Age: 74 Year
  Sex: Male
  Weight: 90.7 kg

DRUGS (9)
  1. SPRYCEL [Suspect]
     Indication: CHRONIC MYELOID LEUKAEMIA
     Dosage: INTERUPTED FOR 3 DAYS FROM 08MAR2013.RESTARTED ON 12MAR2013.REDUCED DOSE 100MG ONCE DAILY TO 80 MG.
     Route: 048
     Dates: start: 20130221
  2. CENTRUM SILVER [Concomitant]
  3. COLCRYS [Concomitant]
  4. SIMVASTATIN [Concomitant]
  5. ASPIRIN [Concomitant]
  6. AVODART [Concomitant]
  7. METOPROLOL [Concomitant]
  8. ALLOPURINOL [Concomitant]
  9. ASA [Concomitant]

REACTIONS (2)
  - Thrombocytopenia [Not Recovered/Not Resolved]
  - Dyspnoea [Unknown]
